FAERS Safety Report 18465129 (Version 2)
Quarter: 2020Q4

REPORT INFORMATION
  Report Type: Report from Study
  Country: US (occurrence: US)
  Receive Date: 20201104
  Receipt Date: 20201231
  Transmission Date: 20210114
  Serious: Yes (Hospitalization, Other)
  Sender: FDA-Public Use
  Company Number: US-TAKEDA-2020TUS047589

PATIENT
  Sex: Male

DRUGS (8)
  1. TEDUGLUTIDE [Suspect]
     Active Substance: TEDUGLUTIDE
     Indication: SHORT-BOWEL SYNDROME
     Dosage: 0.54 MILLIGRAM, QD
     Route: 058
     Dates: start: 20200605
  2. TEDUGLUTIDE [Suspect]
     Active Substance: TEDUGLUTIDE
     Dosage: 0.73 MILLIGRAM, QD
     Route: 058
     Dates: start: 20200605
  3. TEDUGLUTIDE [Suspect]
     Active Substance: TEDUGLUTIDE
     Indication: SHORT-BOWEL SYNDROME
     Dosage: 0.54 MILLIGRAM, QD
     Route: 058
     Dates: start: 20200605
  4. TEDUGLUTIDE [Suspect]
     Active Substance: TEDUGLUTIDE
     Dosage: 0.73 MILLIGRAM, QD
     Route: 058
     Dates: start: 20200605
  5. TEDUGLUTIDE [Suspect]
     Active Substance: TEDUGLUTIDE
     Dosage: 0.73 MILLIGRAM, QD
     Route: 058
     Dates: start: 20200605
  6. TEDUGLUTIDE [Suspect]
     Active Substance: TEDUGLUTIDE
     Dosage: 0.73 MILLIGRAM, QD
     Route: 058
     Dates: start: 20200605
  7. TEDUGLUTIDE [Suspect]
     Active Substance: TEDUGLUTIDE
     Indication: SHORT-BOWEL SYNDROME
     Dosage: 0.54 MILLIGRAM, QD
     Route: 058
     Dates: start: 20200605
  8. TEDUGLUTIDE [Suspect]
     Active Substance: TEDUGLUTIDE
     Indication: SHORT-BOWEL SYNDROME
     Dosage: 0.54 MILLIGRAM, QD
     Route: 058
     Dates: start: 20200605

REACTIONS (1)
  - Vascular device infection [Unknown]
